FAERS Safety Report 5074703-2 (Version None)
Quarter: 2006Q3

REPORT INFORMATION
  Report Type: 
  Country: None (occurrence: None)
  Receive Date: 20060803
  Receipt Date: 20060717
  Transmission Date: 20061208
  Serious: Yes (Death)
  Sender: FDA-Public Use
  Company Number: US200607002961

PATIENT
  Age: 71 Year
  Sex: Male

DRUGS (8)
  1. CYMBALTA [Suspect]
  2. CARDIZEM [Concomitant]
  3. CLONIDINE [Concomitant]
  4. ALLOPURINOL [Concomitant]
  5. ZOCOR [Concomitant]
  6. PERCOCET [Concomitant]
  7. FLEXERIL [Concomitant]
  8. OXYCONTIN [Concomitant]

REACTIONS (1)
  - SUDDEN DEATH [None]
